FAERS Safety Report 22288545 (Version 3)
Quarter: 2023Q2

REPORT INFORMATION
  Report Type: Spontaneous
  Country: HU (occurrence: HU)
  Receive Date: 20230505
  Receipt Date: 20230603
  Transmission Date: 20230722
  Serious: Yes (Other)
  Sender: FDA-Public Use
  Company Number: HU-JNJFOC-20230506807

PATIENT
  Age: 46 Year
  Sex: Female

DRUGS (17)
  1. SPRAVATO [Suspect]
     Active Substance: ESKETAMINE
     Indication: Major depression
     Dosage: PHASE 1, 8 WEEKS
     Dates: start: 20220330, end: 20220516
  2. SPRAVATO [Suspect]
     Active Substance: ESKETAMINE
     Dosage: PHASE 2, 6 WEEKS
     Dates: start: 20220523, end: 20220627
  3. SPRAVATO [Suspect]
     Active Substance: ESKETAMINE
     Dosage: PHASE 3A (3 WEEKS)
     Dates: start: 20220704, end: 20220725
  4. SPRAVATO [Suspect]
     Active Substance: ESKETAMINE
     Dosage: PHASE 3B (5 WEEKS), END DATE WAS ALSO REPORTED AS 29-AUG-2022.
     Dates: start: 20220801, end: 20220822
  5. VORTIOXETINE [Concomitant]
     Active Substance: VORTIOXETINE
     Indication: Depression
     Dosage: 35 WEEKS
     Route: 065
  6. VORTIOXETINE [Concomitant]
     Active Substance: VORTIOXETINE
     Dosage: IN MORNING
     Route: 065
  7. AGOMELATINE [Concomitant]
     Active Substance: AGOMELATINE
     Indication: Depression
     Dosage: 8 WEEKS
     Route: 065
  8. AGOMELATINE [Concomitant]
     Active Substance: AGOMELATINE
     Dosage: IN THE EVENING 2
     Route: 065
  9. LEVOTHYROXINE [Concomitant]
     Active Substance: LEVOTHYROXINE
     Route: 065
  10. ALPRAZOLAM [Concomitant]
     Active Substance: ALPRAZOLAM
     Dosage: 2X1
     Route: 065
  11. ALPRAZOLAM [Concomitant]
     Active Substance: ALPRAZOLAM
     Route: 065
  12. ALPRAZOLAM [Concomitant]
     Active Substance: ALPRAZOLAM
     Route: 065
  13. ALPRAZOLAM [Concomitant]
     Active Substance: ALPRAZOLAM
     Route: 065
  14. ALPRAZOLAM [Concomitant]
     Active Substance: ALPRAZOLAM
     Route: 065
  15. ALPRAZOLAM [Concomitant]
     Active Substance: ALPRAZOLAM
     Route: 065
  16. DOMPERIDONE [Concomitant]
     Active Substance: DOMPERIDONE
     Route: 065
  17. FAMOTIDINE [Concomitant]
     Active Substance: FAMOTIDINE
     Route: 065

REACTIONS (22)
  - Major depression [Recovering/Resolving]
  - Torticollis [Unknown]
  - Obsessive-compulsive disorder [Unknown]
  - Gastric infection [Unknown]
  - Eye movement disorder [Recovered/Resolved]
  - Malaise [Unknown]
  - Abdominal discomfort [Recovered/Resolved]
  - Alopecia [Unknown]
  - Tooth disorder [Unknown]
  - Decreased appetite [Recovered/Resolved]
  - Diarrhoea [Recovering/Resolving]
  - Speech disorder [Recovered/Resolved]
  - Hypoaesthesia [Recovered/Resolved]
  - Blood pressure increased [Recovered/Resolved]
  - Ocular discomfort [Recovered/Resolved]
  - Nausea [Unknown]
  - Dizziness [Recovered/Resolved]
  - Dissociative disorder [Recovered/Resolved]
  - Anxiety [Unknown]
  - Headache [Recovered/Resolved]
  - Drug ineffective [Unknown]
  - Off label use [Unknown]

NARRATIVE: CASE EVENT DATE: 20220101
